FAERS Safety Report 5018900-0 (Version None)
Quarter: 2006Q2

REPORT INFORMATION
  Report Type: 
  Country: None (occurrence: None)
  Receive Date: 20060531
  Receipt Date: 20060518
  Transmission Date: 20061013
  Serious: Yes (Hospitalization, Other)
  Sender: FDA-Public Use
  Company Number: 2006067168

PATIENT
  Age: 49 Year
  Sex: Male

DRUGS (10)
  1. PHENYTOIN SODIUM [Suspect]
     Indication: CONVULSION
     Dosage: 300 MG (100 MG, 3 IN 1 D), ORAL
     Route: 048
     Dates: end: 20040101
  2. DILANTIN [Suspect]
     Indication: CONVULSION
     Dates: start: 20040130, end: 20040131
  3. CARBAMAZEPINE [Suspect]
     Indication: ILL-DEFINED DISORDER
     Dosage: 400 MG (200 MG, 2 IN 1 D),
  4. GABAPENTIN [Concomitant]
  5. CITALOPRAM HYDROBROMIDE [Concomitant]
  6. MAGNESIUM (MAGNESIUM) [Concomitant]
  7. THIAMINE (THIAMINE) [Concomitant]
  8. FOLIC ACID [Concomitant]
  9. ZESTRIL [Concomitant]
  10. MULTIVITAMIN [Concomitant]

REACTIONS (9)
  - ANTICONVULSANT DRUG LEVEL DECREASED [None]
  - ARTHRALGIA [None]
  - ASTHENIA [None]
  - CONVULSION [None]
  - DECREASED APPETITE [None]
  - DERMATITIS EXFOLIATIVE [None]
  - HYPERSOMNIA [None]
  - PAIN IN EXTREMITY [None]
  - STEVENS-JOHNSON SYNDROME [None]
